FAERS Safety Report 5226550-6 (Version None)
Quarter: 2007Q1

REPORT INFORMATION
  Report Type: 
  Country: None (occurrence: None)
  Receive Date: 20070201
  Receipt Date: 20070129
  Transmission Date: 20070707
  Serious: Yes (Hospitalization, Other)
  Sender: FDA-Public Use
  Company Number: US-PFIZER INC-2007002046

PATIENT
  Sex: Female
  Weight: 85.7 kg

DRUGS (5)
  1. NORVASC [Suspect]
     Indication: HYPERTENSION
     Dosage: DAILY DOSE:10MG
  2. HYDROCHLOROTHIAZIDE [Suspect]
     Dosage: DAILY DOSE:25MG
  3. CLONIDINE [Suspect]
     Dates: start: 20031206
  4. PREMARIN [Suspect]
     Dosage: DAILY DOSE:1.25MG
  5. TOPROL-XL [Suspect]
     Dosage: DAILY DOSE:200MG
     Dates: start: 20040305

REACTIONS (1)
  - DIABETES MELLITUS [None]
